FAERS Safety Report 20695099 (Version 1)
Quarter: 2022Q2

REPORT INFORMATION
  Report Type: Spontaneous
  Country: FR (occurrence: FR)
  Receive Date: 20220411
  Receipt Date: 20220411
  Transmission Date: 20220721
  Serious: Yes (Hospitalization)
  Sender: FDA-Public Use
  Company Number: None

PATIENT
  Age: 66 Year
  Sex: Female
  Weight: 57 kg

DRUGS (3)
  1. FLUOROURACIL [Suspect]
     Active Substance: FLUOROURACIL
     Indication: Adenocarcinoma
     Dosage: 50 MG/ML
     Route: 042
     Dates: start: 20220126
  2. AVASTIN [Concomitant]
     Active Substance: BEVACIZUMAB
     Indication: Adenocarcinoma
     Dosage: 25MG/ML
     Route: 042
     Dates: start: 20220126
  3. OXALIPLATIN [Concomitant]
     Active Substance: OXALIPLATIN
     Indication: Adenocarcinoma
     Dosage: 5 MG/ML
     Route: 042
     Dates: start: 20220126

REACTIONS (1)
  - Aplasia [Recovered/Resolved with Sequelae]

NARRATIVE: CASE EVENT DATE: 20220204
